FAERS Safety Report 5201292-1 (Version None)
Quarter: 2007Q1

REPORT INFORMATION
  Report Type: 
  Country: None (occurrence: None)
  Receive Date: 20070108
  Receipt Date: 20061227
  Transmission Date: 20070707
  Serious: Yes (Other)
  Sender: FDA-Public Use
  Company Number: US-ELI_LILLY_AND_COMPANY-US200612004538

PATIENT
  Age: 83 Year
  Sex: Female

DRUGS (2)
  1. FORTEO [Suspect]
     Indication: OSTEOPOROSIS
     Dosage: UNK, UNK
     Dates: start: 20060701
  2. FOSAMAX                                 /ITA/ [Concomitant]
     Dosage: UNK, UNK
     Dates: start: 20050701, end: 20060701

REACTIONS (4)
  - FATIGUE [None]
  - MEMORY IMPAIRMENT [None]
  - METASTASES TO LIVER [None]
  - PHARMACEUTICAL PRODUCT COMPLAINT [None]
